FAERS Safety Report 4781123-4 (Version None)
Quarter: 2005Q3

REPORT INFORMATION
  Report Type: 
  Country: None (occurrence: None)
  Receive Date: 20050926
  Receipt Date: 20050926
  Transmission Date: 20060218
  Serious: Yes (Death, Hospitalization)
  Sender: FDA-Public Use
  Company Number: None

PATIENT
  Sex: Male
  Weight: 74 kg

DRUGS (2)
  1. PACLITAXEL [Suspect]
     Indication: BLADDER CANCER
     Dosage: SEE IMAGE
     Dates: start: 20050907, end: 20050907
  2. GEMCITABINE [Suspect]
     Dosage: SEE IMAGE
     Dates: start: 20050907, end: 20050907

REACTIONS (6)
  - ATRIAL FIBRILLATION [None]
  - BREATH SOUNDS ABNORMAL [None]
  - PERCUSSION TEST ABNORMAL [None]
  - PLATELET COUNT DECREASED [None]
  - RESPIRATORY FAILURE [None]
  - RIGHT VENTRICULAR FAILURE [None]
